FAERS Safety Report 25029558 (Version 1)
Quarter: 2025Q1

REPORT INFORMATION
  Report Type: Spontaneous
  Country: US (occurrence: US)
  Receive Date: 20250303
  Receipt Date: 20250303
  Transmission Date: 20250408
  Serious: No
  Sender: ABBVIE
  Company Number: US-ABBVIE-6155714

PATIENT
  Sex: Female

DRUGS (2)
  1. QULIPTA [Suspect]
     Active Substance: ATOGEPANT
     Indication: Migraine
     Dosage: FORM STRENGTH: 60 MILLIGRAM
     Route: 048
     Dates: end: 202408
  2. UBRELVY [Suspect]
     Active Substance: UBROGEPANT
     Indication: Migraine
     Route: 048
     Dates: end: 202408

REACTIONS (1)
  - Maternal exposure during pregnancy [Unknown]
